FAERS Safety Report 15892766 (Version 4)
Quarter: 2019Q1

REPORT INFORMATION
  Report Type: Report from Study
  Country: BR (occurrence: BR)
  Receive Date: 20190130
  Receipt Date: 20190301
  Transmission Date: 20190417
  Serious: Yes (Other)
  Sender: FDA-Public Use
  Company Number: PHHY2019BR018915

PATIENT
  Age: 56 Year
  Sex: Female
  Weight: 41 kg

DRUGS (2)
  1. COSENTYX [Suspect]
     Active Substance: SECUKINUMAB
     Indication: ANKYLOSING SPONDYLITIS
     Dosage: 150 MG, QW
     Route: 058
     Dates: start: 20190102
  2. COSENTYX [Suspect]
     Active Substance: SECUKINUMAB
     Dosage: 150 MG, QW
     Route: 058
     Dates: start: 20190109

REACTIONS (7)
  - Road traffic accident [Unknown]
  - Nasal injury [Recovered/Resolved]
  - Fall [Recovered/Resolved]
  - Scratch [Recovered/Resolved]
  - Breast injury [Recovering/Resolving]
  - Pain [Recovered/Resolved]
  - Skin discolouration [Recovering/Resolving]

NARRATIVE: CASE EVENT DATE: 201901
